FAERS Safety Report 9366589 (Version 1)
Quarter: 2013Q2

REPORT INFORMATION
  Report Type: Spontaneous
  Country: US (occurrence: None)
  Receive Date: 20130620
  Receipt Date: 20130620
  Transmission Date: 20140414
  Serious: Yes (Death, Life-Threatening, Hospitalization, Other)
  Sender: FDA-Public Use
  Company Number: US-ZYDUS-001443

PATIENT
  Age: 37 Year
  Sex: Male

DRUGS (1)
  1. METFORMIN (METFORMIN) [Suspect]

REACTIONS (6)
  - Lactic acidosis [None]
  - Blood bicarbonate decreased [None]
  - Blood creatinine increased [None]
  - Haemodialysis [None]
  - Constipation [None]
  - Toxicity to various agents [None]
